FAERS Safety Report 8237806-7 (Version None)
Quarter: 2012Q1

REPORT INFORMATION
  Report Type: 
  Country: None (occurrence: None)
  Receive Date: 20120327
  Receipt Date: 20120322
  Transmission Date: 20120608
  Serious: Yes (Other)
  Sender: FDA-Public Use
  Company Number: US-TEVA-329431USA

PATIENT
  Sex: Female

DRUGS (1)
  1. ACTIQ [Suspect]
     Route: 002

REACTIONS (4)
  - VOMITING [None]
  - SUICIDAL IDEATION [None]
  - DRUG WITHDRAWAL SYNDROME [None]
  - DEPRESSION [None]
